FAERS Safety Report 12521144 (Version 1)
Quarter: 2016Q3

REPORT INFORMATION
  Report Type: Spontaneous
  Country: DE (occurrence: DE)
  Receive Date: 20160701
  Receipt Date: 20160701
  Transmission Date: 20161109
  Serious: Yes (Other)
  Sender: FDA-Public Use
  Company Number: DE-ASTRAZENECA-2016SE69401

PATIENT
  Age: 78 Year
  Sex: Female
  Weight: 58 kg

DRUGS (9)
  1. SIMVASTATIN. [Concomitant]
     Active Substance: SIMVASTATIN
  2. NOVAMINSULFON LICHTENSTEIN [Concomitant]
     Dosage: 4X1
  3. INDOMET RATIOPHARM [Concomitant]
     Active Substance: INDOMETHACIN
     Dosage: AS REQUIRED
     Dates: end: 201505
  4. ASPIRIN. [Suspect]
     Active Substance: ASPIRIN
     Indication: CORONARY ARTERY DISEASE
     Route: 048
     Dates: start: 201509
  5. BRILIQUE [Suspect]
     Active Substance: TICAGRELOR
     Indication: ACUTE MYOCARDIAL INFARCTION
     Route: 048
     Dates: start: 201509, end: 20160608
  6. PANTOPRAZOL [Concomitant]
     Active Substance: PANTOPRAZOLE SODIUM
     Dosage: ACTAVIS , 40MG, 14 TAGE INITIAL 2X1
  7. BISOPROLOL RATIOPHARM [Concomitant]
     Active Substance: BISOPROLOL
  8. NITROLINGUAL [Concomitant]
     Active Substance: NITROGLYCERIN
     Dosage: 11.8 GM, AS REQUIRED ONE TO TWO PUFFS
     Route: 055
  9. RAMILICH [Concomitant]
     Active Substance: RAMIPRIL

REACTIONS (4)
  - Melaena [Unknown]
  - Gastrointestinal haemorrhage [Unknown]
  - Haematoma [Unknown]
  - Anaemia [Unknown]

NARRATIVE: CASE EVENT DATE: 2016
